FAERS Safety Report 8167419-7 (Version None)
Quarter: 2012Q1

REPORT INFORMATION
  Report Type: 
  Country: None (occurrence: None)
  Receive Date: 20120103
  Receipt Date: 20111009
  Transmission Date: 20120608
  Serious: No
  Sender: FDA-Public Use
  Company Number: AE-2011-002171

PATIENT
  Age: 51 Year
  Sex: Male
  Weight: 84.369 kg

DRUGS (6)
  1. INCIVEK [Suspect]
     Dosage: 2250 MG (750 MG, 3 IN 1 D), ORAL
     Route: 048
     Dates: start: 20111007
  2. PEGASYS [Concomitant]
  3. RIBAVIRIN [Concomitant]
  4. VITAMIN D [Concomitant]
  5. ADDERALL (OBETROL) [Concomitant]
  6. XANAX [Concomitant]

REACTIONS (3)
  - ABDOMINAL PAIN UPPER [None]
  - HAEMORRHOIDAL HAEMORRHAGE [None]
  - ANORECTAL DISCOMFORT [None]
